FAERS Safety Report 16252675 (Version 1)
Quarter: 2019Q2

REPORT INFORMATION
  Report Type: Spontaneous
  Country: FR (occurrence: FR)
  Receive Date: 20190429
  Receipt Date: 20190429
  Transmission Date: 20190711
  Serious: Yes (Hospitalization)
  Sender: FDA-Public Use
  Company Number: FR-PFIZER INC-2019177966

PATIENT
  Age: 42 Year
  Sex: Male
  Weight: 112 kg

DRUGS (2)
  1. OXALIPLATIN. [Suspect]
     Active Substance: OXALIPLATIN
     Indication: HEPATIC NEOPLASM
     Dosage: 170 MG, SINGLE
     Route: 042
     Dates: start: 20190108, end: 20190108
  2. CALCIUM FOLINATE [Suspect]
     Active Substance: LEUCOVORIN CALCIUM
     Indication: PREMEDICATION
     Dosage: UNK
     Route: 042
     Dates: start: 20190108, end: 20190108

REACTIONS (6)
  - Generalised erythema [Recovered/Resolved]
  - Sneezing [Recovered/Resolved]
  - Pruritus [Recovered/Resolved]
  - Sense of oppression [Recovered/Resolved]
  - Nausea [Recovered/Resolved]
  - Infusion related reaction [Recovered/Resolved]

NARRATIVE: CASE EVENT DATE: 20190108
